FAERS Safety Report 9720494 (Version 1)
Quarter: 2013Q4

REPORT INFORMATION
  Report Type: Spontaneous
  Country: US (occurrence: US)
  Receive Date: 20131129
  Receipt Date: 20131129
  Transmission Date: 20140711
  Serious: Yes (Other)
  Sender: FDA-Public Use
  Company Number: US-JNJFOC-20131113969

PATIENT
  Sex: Male
  Weight: 65.77 kg

DRUGS (6)
  1. TYLENOL W/CODEINE NO. 4 [Suspect]
     Indication: PAIN
     Dosage: 300/60 MG
     Route: 048
  2. DURAGESIC [Concomitant]
     Indication: PAIN
     Route: 062
  3. IMODIUM [Concomitant]
     Indication: FREQUENT BOWEL MOVEMENTS
     Route: 048
  4. PAREGORIC [Concomitant]
     Indication: FREQUENT BOWEL MOVEMENTS
     Route: 065
  5. DALMANE [Concomitant]
     Indication: SEDATIVE THERAPY
     Route: 048
  6. FLOMAX [Concomitant]
     Indication: URINARY TRACT DISORDER
     Route: 065

REACTIONS (4)
  - Lymphoma [Not Recovered/Not Resolved]
  - Memory impairment [Not Recovered/Not Resolved]
  - Abnormal loss of weight [Not Recovered/Not Resolved]
  - Unevaluable event [Not Recovered/Not Resolved]
